FAERS Safety Report 6151912-2 (Version None)
Quarter: 2009Q2

REPORT INFORMATION
  Report Type: 
  Country: None (occurrence: None)
  Receive Date: 20090410
  Receipt Date: 20090406
  Transmission Date: 20091009
  Serious: Yes (Hospitalization)
  Sender: FDA-Public Use
  Company Number: FR-MERCK-0902FRA00060

PATIENT
  Age: 73 Year
  Sex: Male

DRUGS (5)
  1. FOSAMAX [Suspect]
     Indication: OSTEOPOROSIS
     Route: 048
     Dates: start: 20080715, end: 20081018
  2. PERINDOPRIL ARGININE [Concomitant]
     Route: 048
  3. NICARDIPINE HYDROCHLORIDE [Concomitant]
     Route: 048
  4. ESOMEPRAZOLE MAGNESIUM [Concomitant]
     Route: 048
  5. PREDNISONE [Concomitant]
     Route: 065

REACTIONS (2)
  - ECZEMA [None]
  - URTICARIA [None]
